FAERS Safety Report 18669644 (Version 1)
Quarter: 2020Q4

REPORT INFORMATION
  Report Type: Spontaneous
  Country: US (occurrence: US)
  Receive Date: 20201228
  Receipt Date: 20201228
  Transmission Date: 20210114
  Serious: Yes (Other)
  Sender: FDA-Public Use
  Company Number: US-ALKEM LABORATORIES LIMITED-US-ALKEM-2019-10305

PATIENT
  Age: 51 Year
  Sex: Male

DRUGS (5)
  1. MYCOPHENOLATE MOFETIL. [Suspect]
     Active Substance: MYCOPHENOLATE MOFETIL
     Indication: IMMUNOSUPPRESSION
     Dosage: 1000 MILLIGRAM, BID
     Route: 065
  2. FLUTICASONE-SALMETEROL [Concomitant]
     Indication: PRODUCT USED FOR UNKNOWN INDICATION
     Dosage: 113 TO 114 MG
     Route: 065
  3. HYDROXYCHLOROQUINE [Concomitant]
     Active Substance: HYDROXYCHLOROQUINE
     Indication: PRODUCT USED FOR UNKNOWN INDICATION
     Dosage: 200 MILLIGRAM, BID
     Route: 065
  4. MYCOPHENOLATE MOFETIL. [Suspect]
     Active Substance: MYCOPHENOLATE MOFETIL
     Dosage: UNK
  5. PREDNISONE. [Suspect]
     Active Substance: PREDNISONE
     Indication: IMMUNOSUPPRESSION
     Dosage: 10 MILLIGRAM, QD
     Route: 065

REACTIONS (10)
  - Herpes dermatitis [Unknown]
  - Paraneoplastic pemphigus [Unknown]
  - Acute pulmonary histoplasmosis [Unknown]
  - Herpes zoster [Unknown]
  - Aspergillus infection [Unknown]
  - Mycobacterium avium complex infection [Unknown]
  - Infection [Unknown]
  - Pneumonia pneumococcal [Unknown]
  - Pneumonia [Unknown]
  - Mycobacterial infection [Unknown]
